FAERS Safety Report 16977779 (Version 1)
Quarter: 2019Q4

REPORT INFORMATION
  Report Type: Report from Study
  Country: CA (occurrence: CA)
  Receive Date: 20191031
  Receipt Date: 20191031
  Transmission Date: 20200122
  Serious: Yes (Other)
  Sender: FDA-Public Use
  Company Number: CA-ORION CORPORATION ORION PHARMA-TREX2019-4855

PATIENT
  Age: 60 Year
  Sex: Female

DRUGS (17)
  1. METHOTREXATE (TRADE NAME UNKNOWN) [Suspect]
     Active Substance: METHOTREXATE
     Indication: PRODUCT USED FOR UNKNOWN INDICATION
     Route: 065
  2. COSENTYX [Suspect]
     Active Substance: SECUKINUMAB
     Indication: PSORIATIC ARTHROPATHY
     Route: 058
  3. MELOXICAM. [Concomitant]
     Active Substance: MELOXICAM
  4. COSENTYX [Suspect]
     Active Substance: SECUKINUMAB
     Route: 058
  5. COSENTYX [Suspect]
     Active Substance: SECUKINUMAB
     Route: 058
  6. COSENTYX [Suspect]
     Active Substance: SECUKINUMAB
     Route: 058
  7. INDOMETHACIN. [Suspect]
     Active Substance: INDOMETHACIN
     Indication: PRODUCT USED FOR UNKNOWN INDICATION
     Route: 065
  8. CELEBREX [Concomitant]
     Active Substance: CELECOXIB
     Route: 065
  9. COSENTYX [Suspect]
     Active Substance: SECUKINUMAB
     Route: 058
  10. COSENTYX [Suspect]
     Active Substance: SECUKINUMAB
     Route: 058
  11. VOLTAREN [Suspect]
     Active Substance: DICLOFENAC SODIUM
     Indication: PRODUCT USED FOR UNKNOWN INDICATION
     Route: 065
  12. MOBICOX [Concomitant]
     Active Substance: MELOXICAM
     Route: 065
  13. ENBREL [Concomitant]
     Active Substance: ETANERCEPT
     Route: 065
  14. COSENTYX [Suspect]
     Active Substance: SECUKINUMAB
     Indication: PSORIASIS
     Route: 058
  15. COSENTYX [Suspect]
     Active Substance: SECUKINUMAB
     Route: 058
  16. IBUPROFEN. [Concomitant]
     Active Substance: IBUPROFEN
     Route: 065
  17. STELARA [Concomitant]
     Active Substance: USTEKINUMAB
     Route: 065

REACTIONS (23)
  - Chest pain [Recovered/Resolved]
  - Fatigue [Recovered/Resolved]
  - Pyrexia [Recovered/Resolved]
  - Condition aggravated [Recovered/Resolved]
  - Oropharyngeal pain [Recovered/Resolved]
  - Pruritus [Recovered/Resolved]
  - Arthralgia [Recovered/Resolved]
  - Vision blurred [Recovered/Resolved]
  - Lymphoma [Recovered/Resolved]
  - Influenza [Recovered/Resolved]
  - Abdominal pain upper [Recovered/Resolved]
  - Mobility decreased [Recovered/Resolved]
  - Axillary pain [Recovered/Resolved]
  - Irritable bowel syndrome [Recovered/Resolved]
  - Inappropriate schedule of product administration [Recovered/Resolved]
  - Nasopharyngitis [Recovered/Resolved]
  - Back pain [Recovered/Resolved]
  - Musculoskeletal chest pain [Recovered/Resolved]
  - Sinus congestion [Recovered/Resolved]
  - Breast pain [Recovered/Resolved]
  - Dyspnoea [Recovered/Resolved]
  - Inflammation [Recovered/Resolved]
  - Pain [Recovered/Resolved]
